FAERS Safety Report 5167716-3 (Version None)
Quarter: 2006Q4

REPORT INFORMATION
  Report Type: 
  Country: None (occurrence: None)
  Receive Date: 20061204
  Receipt Date: 20061204
  Transmission Date: 20070319
  Serious: Yes (Hospitalization)
  Sender: FDA-Public Use
  Company Number: None

PATIENT
  Age: 52 Year
  Weight: 63.5 kg

DRUGS (1)
  1. RIBAVIRIN [Suspect]
     Indication: HEPATITIS C
     Dosage: 800MG  QD  PO
     Route: 048

REACTIONS (4)
  - ANAEMIA [None]
  - HEPATITIS C [None]
  - HYPERLIPIDAEMIA [None]
  - HYPERTENSION [None]
